FAERS Safety Report 4350922-5 (Version None)
Quarter: 2004Q2

REPORT INFORMATION
  Report Type: 
  Country: None (occurrence: None)
  Receive Date: 20040430
  Receipt Date: 20031029
  Transmission Date: 20050107
  Serious: Yes (Death)
  Sender: FDA-Public Use
  Company Number: US-GLAXOSMITHKLINE-B0313895A

PATIENT
  Age: 34 Year
  Sex: Male

DRUGS (3)
  1. WELLBUTRIN [Suspect]
     Dosage: 7TAB CUMULATIVE DOSE
     Route: 048
  2. SERTRALINE [Suspect]
     Dosage: 7TAB CUMULATIVE DOSE
     Route: 048
  3. CAFFEINE [Suspect]
     Route: 048

REACTIONS (9)
  - CARDIAC ARREST [None]
  - COMPLETED SUICIDE [None]
  - CONVULSION [None]
  - DYSARTHRIA [None]
  - HYPERHIDROSIS [None]
  - MENTAL STATUS CHANGES [None]
  - MUSCLE RIGIDITY [None]
  - OVERDOSE [None]
  - STATUS EPILEPTICUS [None]
